FAERS Safety Report 23126560 (Version 1)
Quarter: 2023Q4

REPORT INFORMATION
  Report Type: Spontaneous
  Country: RO (occurrence: RO)
  Receive Date: 20231030
  Receipt Date: 20231030
  Transmission Date: 20240109
  Serious: Yes (Other)
  Sender: FDA-Public Use
  Company Number: RO-PFIZER INC-PV202300175640

PATIENT
  Age: 61 Year
  Sex: Female

DRUGS (2)
  1. XELJANZ [Suspect]
     Active Substance: TOFACITINIB CITRATE
     Indication: Rheumatoid arthritis
     Dosage: 5 MG, 2X/DAY
     Route: 048
     Dates: start: 201811
  2. COVID-19 VACCINE [Concomitant]
     Indication: COVID-19 immunisation
     Dosage: UNK

REACTIONS (6)
  - Hip fracture [Recovered/Resolved]
  - Herpes zoster [Recovered/Resolved]
  - COVID-19 [Unknown]
  - Osteoporosis [Unknown]
  - Condition aggravated [Unknown]
  - Transaminases increased [Unknown]

NARRATIVE: CASE EVENT DATE: 20190701
